FAERS Safety Report 8258290-3 (Version None)
Quarter: 2012Q1

REPORT INFORMATION
  Report Type: 
  Country: None (occurrence: None)
  Receive Date: 20120322
  Receipt Date: 20120220
  Transmission Date: 20120608
  Serious: Yes (Hospitalization)
  Sender: FDA-Public Use
  Company Number: UTC-014830

PATIENT
  Age: 73 Year
  Sex: Female
  Weight: 91.8 kg

DRUGS (3)
  1. TYVASO [Suspect]
     Indication: PULMONARY ARTERIAL HYPERTENSION
     Dosage: 216 MCG (54 MCG, 4 IN 1 D), INHALATION
     Route: 055
     Dates: start: 20111109
  2. DIURETICS (DIURETICS) [Concomitant]
  3. IGG (IMMUNOGLOBULIN) [Concomitant]

REACTIONS (4)
  - ABDOMINAL PAIN UPPER [None]
  - IMPAIRED HEALING [None]
  - WOUND [None]
  - PYREXIA [None]
